FAERS Safety Report 6652034-4 (Version None)
Quarter: 2010Q1

REPORT INFORMATION
  Report Type: 
  Country: None (occurrence: None)
  Receive Date: 20100325
  Receipt Date: 20100318
  Transmission Date: 20100710
  Serious: Yes (Hospitalization)
  Sender: FDA-Public Use
  Company Number: US-ROCHE-678392

PATIENT
  Sex: Male
  Weight: 66.7 kg

DRUGS (15)
  1. BEVACIZUMAB [Suspect]
     Indication: NON-SMALL CELL LUNG CANCER STAGE IV
     Route: 042
     Dates: start: 20090402
  2. BEVACIZUMAB [Suspect]
     Dosage: MAINTENANCE THERAPY.
     Route: 042
     Dates: start: 20090709, end: 20090730
  3. PEMETREXED [Suspect]
     Indication: NON-SMALL CELL LUNG CANCER STAGE IV
     Dosage: LAST DOSE PRIOR TO SAE: 30 JULY 2009.
     Route: 042
     Dates: start: 20090402
  4. PEMETREXED [Suspect]
     Dosage: MAINTENANACE THERAPY
     Route: 042
     Dates: start: 20090709
  5. CARBOPLATIN [Suspect]
     Indication: NON-SMALL CELL LUNG CANCER STAGE IV
     Dosage: DOSE: 6 AUC. LAST DOSE PRIOR TO SAE: 18 JUNE 2009.
     Route: 042
     Dates: start: 20090402, end: 20090618
  6. SIMVASTATIN [Concomitant]
  7. ADVAIR DISKUS 100/50 [Concomitant]
  8. ALBUTEROL [Concomitant]
  9. AMBIEN [Concomitant]
     Dates: start: 20090318
  10. LORTAB [Concomitant]
     Dates: start: 20090325
  11. VITAMIN B-12 [Concomitant]
     Dates: start: 20090528
  12. FOLIC ACID [Concomitant]
     Dates: start: 20090323
  13. ZOFRAN [Concomitant]
     Dates: start: 20090513
  14. MUCINEX [Concomitant]
     Dates: start: 20090513
  15. XANAX [Concomitant]
     Dates: start: 20090513

REACTIONS (2)
  - EMPHYSEMA [None]
  - STARVATION [None]
